FAERS Safety Report 7965094-5 (Version None)
Quarter: 2011Q4

REPORT INFORMATION
  Report Type: 
  Country: None (occurrence: None)
  Receive Date: 20111208
  Receipt Date: 20111126
  Transmission Date: 20120403
  Serious: Yes (Hospitalization, Other)
  Sender: FDA-Public Use
  Company Number: US-BAYER-2011-028734

PATIENT
  Age: 27 Year
  Sex: Female
  Weight: 81.633 kg

DRUGS (2)
  1. YASMIN [Suspect]
     Indication: ACNE
     Dosage: UNK
     Route: 048
     Dates: start: 20050324, end: 20060201
  2. PREVACID [Concomitant]
     Dosage: 30 MG, QD
     Dates: start: 20050602

REACTIONS (14)
  - CHOLELITHIASIS [None]
  - DIARRHOEA [None]
  - EMOTIONAL DISTRESS [None]
  - INCISION SITE PAIN [None]
  - GALLBLADDER DISORDER [None]
  - ABDOMINAL PAIN UPPER [None]
  - PAIN [None]
  - CHOLECYSTITIS CHRONIC [None]
  - ABDOMINAL DISTENSION [None]
  - PANCREATITIS [None]
  - INJURY [None]
  - ABDOMINAL PAIN [None]
  - ANXIETY [None]
  - ANHEDONIA [None]
